FAERS Safety Report 6166171-4 (Version None)
Quarter: 2009Q2

REPORT INFORMATION
  Report Type: 
  Country: None (occurrence: None)
  Receive Date: 20090424
  Receipt Date: 20090409
  Transmission Date: 20091009
  Serious: Yes (Hospitalization, Disabling, Other)
  Sender: FDA-Public Use
  Company Number: IT-CELGENEUS-083-21880-08111261

PATIENT
  Sex: Male
  Weight: 97 kg

DRUGS (25)
  1. REVLIMID [Suspect]
     Indication: DIFFUSE LARGE B-CELL LYMPHOMA
     Route: 048
     Dates: start: 20080628, end: 20080926
  2. REVLIMID [Suspect]
     Route: 048
     Dates: start: 20080918, end: 20080920
  3. ENDOXAN [Suspect]
     Indication: DIFFUSE LARGE B-CELL LYMPHOMA
     Route: 065
     Dates: start: 20080628
  4. ENDOXAN [Suspect]
     Route: 065
     Dates: start: 20080918
  5. ADRIBLASTIN [Suspect]
     Indication: DIFFUSE LARGE B-CELL LYMPHOMA
     Route: 065
     Dates: start: 20080628
  6. VINCRISTINE [Suspect]
     Indication: DIFFUSE LARGE B-CELL LYMPHOMA
     Route: 065
     Dates: start: 20080628, end: 20080926
  7. PREDNISONE [Suspect]
     Indication: DIFFUSE LARGE B-CELL LYMPHOMA
     Route: 065
     Dates: start: 20080628
  8. PREDNISONE [Suspect]
     Route: 065
     Dates: start: 20080918
  9. RITUXIMAB [Suspect]
     Indication: DIFFUSE LARGE B-CELL LYMPHOMA
     Route: 065
     Dates: start: 20080628
  10. RITUXIMAB [Suspect]
     Route: 065
     Dates: start: 20080918
  11. BACTRIM [Concomitant]
     Route: 048
     Dates: start: 20080830, end: 20090109
  12. BACTRIM [Concomitant]
  13. ZEFFIX [Concomitant]
     Route: 048
     Dates: start: 20080826
  14. ZEFFIX [Concomitant]
  15. LIMPIDEX [Concomitant]
     Route: 048
     Dates: start: 20080830
  16. LIMPIDEX [Concomitant]
  17. LANOXIN [Concomitant]
     Dosage: 0.25
     Route: 048
     Dates: start: 20080830
  18. LANOXIN [Concomitant]
  19. ZYLORIC [Concomitant]
     Route: 048
     Dates: start: 20080830
  20. ZYLORIC [Concomitant]
  21. POLASE [Concomitant]
     Route: 048
     Dates: start: 20081117
  22. POLASE [Concomitant]
  23. ZOVIRAX [Concomitant]
     Indication: DRUG USE FOR UNKNOWN INDICATION
     Route: 048
     Dates: start: 20080830
  24. SPORANOX [Concomitant]
     Indication: DRUG USE FOR UNKNOWN INDICATION
     Route: 048
     Dates: start: 20080830
  25. LEVOXACIN [Concomitant]
     Indication: DRUG USE FOR UNKNOWN INDICATION
     Route: 048
     Dates: start: 20080830

REACTIONS (4)
  - ASTHENIA [None]
  - HYPOTENSION [None]
  - PANCYTOPENIA [None]
  - PERIPHERAL SENSORY NEUROPATHY [None]
